FAERS Safety Report 9851982 (Version 1)
Quarter: 2014Q1

REPORT INFORMATION
  Report Type: Spontaneous
  Country: BR (occurrence: BR)
  Receive Date: 20140129
  Receipt Date: 20140129
  Transmission Date: 20141002
  Serious: Yes (Other)
  Sender: FDA-Public Use
  Company Number: BR-JNJFOC-20140111250

PATIENT
  Age: 58 Year
  Sex: Female

DRUGS (1)
  1. TYLEX [Suspect]
     Indication: ANALGESIC THERAPY
     Route: 065
     Dates: start: 20131222, end: 20131226

REACTIONS (3)
  - Dyspnoea [Recovered/Resolved]
  - Constipation [Recovered/Resolved]
  - Pruritus [Recovered/Resolved]
